FAERS Safety Report 11830823 (Version 1)
Quarter: 2015Q4

REPORT INFORMATION
  Report Type: Spontaneous
  Country: US (occurrence: None)
  Receive Date: 20151211
  Receipt Date: 20151211
  Transmission Date: 20160305
  Serious: Yes (Hospitalization)
  Sender: FDA-Public Use
  Company Number: None

PATIENT
  Age: 63 Year
  Sex: Male
  Weight: 68.8 kg

DRUGS (1)
  1. WARFARIN [Suspect]
     Active Substance: WARFARIN
     Route: 048
     Dates: start: 20150420

REACTIONS (5)
  - International normalised ratio increased [None]
  - Gout [None]
  - Toxicity to various agents [None]
  - Haemoglobin decreased [None]
  - Diarrhoea [None]

NARRATIVE: CASE EVENT DATE: 20150917
